APPROVED DRUG PRODUCT: ACTOPLUS MET XR
Active Ingredient: METFORMIN HYDROCHLORIDE; PIOGLITAZONE HYDROCHLORIDE
Strength: 1GM;EQ 15MG BASE
Dosage Form/Route: TABLET, EXTENDED RELEASE;ORAL
Application: N022024 | Product #001
Applicant: TAKEDA PHARMACEUTICALS USA INC
Approved: May 12, 2009 | RLD: Yes | RS: No | Type: DISCN

PATENTS:
Patent 7959946 | Expires: Jul 31, 2026
Patent 7785627 | Expires: Jul 31, 2026